FAERS Safety Report 8957517 (Version 3)
Quarter: 2013Q1

REPORT INFORMATION
  Report Type: Spontaneous
  Country: US (occurrence: US)
  Receive Date: 20121210
  Receipt Date: 20130214
  Transmission Date: 20140127
  Serious: No
  Sender: FDA-Public Use
  Company Number: US-PFIZER INC-2012307016

PATIENT
  Sex: Female

DRUGS (3)
  1. DETROL LA [Suspect]
     Dosage: 2 MG, UNK
  2. TOLTERODINE [Suspect]
     Dosage: UNK
  3. TOLTERODINE TARTRATE [Suspect]
     Dosage: 2 MG, UNK

REACTIONS (4)
  - Drug ineffective [Unknown]
  - Muscle spasms [Unknown]
  - Muscle spasms [Unknown]
  - Drug effect decreased [Unknown]
